FAERS Safety Report 8588573 (Version 6)
Quarter: 2013Q3

REPORT INFORMATION
  Report Type: Spontaneous
  Country: US (occurrence: US)
  Receive Date: 20120531
  Receipt Date: 20130923
  Transmission Date: 20140515
  Serious: Yes (Hospitalization)
  Sender: FDA-Public Use
  Company Number: US-GLAXOSMITHKLINE-A0979383A

PATIENT
  Age: 64 Year
  Sex: Male

DRUGS (2)
  1. AVANDAMET [Suspect]
     Indication: DIABETES MELLITUS
     Route: 048
     Dates: start: 2003, end: 20100421
  2. AVANDIA [Suspect]
     Indication: TYPE 2 DIABETES MELLITUS
     Route: 048
     Dates: start: 200503, end: 200606

REACTIONS (5)
  - Cerebrovascular accident [Not Recovered/Not Resolved]
  - Acute respiratory failure [Unknown]
  - Pulmonary oedema [Unknown]
  - Hypertensive emergency [Unknown]
  - Atrial flutter [Unknown]
